FAERS Safety Report 5524316-0 (Version None)
Quarter: 2007Q4

REPORT INFORMATION
  Report Type: 
  Country: None (occurrence: None)
  Receive Date: 20071121
  Receipt Date: 20071112
  Transmission Date: 20080405
  Serious: Yes (Hospitalization, Other)
  Sender: FDA-Public Use
  Company Number: US-PFIZER INC-2007095597

PATIENT
  Sex: Male
  Weight: 59 kg

DRUGS (1)
  1. DILANTIN [Suspect]
     Indication: EPILEPSY

REACTIONS (4)
  - BACTERAEMIA [None]
  - CONVULSION [None]
  - INFLUENZA [None]
  - PNEUMONIA [None]
